FAERS Safety Report 16460889 (Version 4)
Quarter: 2020Q1

REPORT INFORMATION
  Report Type: Report from Study
  Country: US (occurrence: US)
  Receive Date: 20190620
  Receipt Date: 20200302
  Transmission Date: 20200409
  Serious: Yes (Hospitalization)
  Sender: FDA-Public Use
  Company Number: PHEH2019US025214

PATIENT
  Sex: Female
  Weight: 46.72 kg

DRUGS (2)
  1. OPSUMIT [Concomitant]
     Active Substance: MACITENTAN
     Indication: PRODUCT USED FOR UNKNOWN INDICATION
     Dosage: UNK
     Route: 065
  2. TREPROSTINIL. [Suspect]
     Active Substance: TREPROSTINIL
     Indication: PULMONARY ARTERIAL HYPERTENSION
     Dosage: 62NG/KG/MIN, CONTINUOUS
     Route: 042
     Dates: start: 20190404

REACTIONS (3)
  - Condition aggravated [Unknown]
  - Pulmonary arterial hypertension [Unknown]
  - Vascular device infection [Unknown]
